FAERS Safety Report 5798309-2 (Version None)
Quarter: 2008Q3

REPORT INFORMATION
  Report Type: 
  Country: None (occurrence: None)
  Receive Date: 20080702
  Receipt Date: 20080605
  Transmission Date: 20090109
  Serious: Yes (Other)
  Sender: FDA-Public Use
  Company Number: US-JNJFOC-20080700119

PATIENT
  Sex: Male

DRUGS (2)
  1. MOTRIN [Suspect]
     Indication: PAIN
  2. CIPRO [Interacting]
     Indication: NEPHROLITHIASIS

REACTIONS (2)
  - CONVULSION [None]
  - DRUG INTERACTION [None]
